FAERS Safety Report 7762935-1 (Version None)
Quarter: 2011Q3

REPORT INFORMATION
  Report Type: 
  Country: None (occurrence: None)
  Receive Date: 20110920
  Receipt Date: 20110912
  Transmission Date: 20111222
  Serious: Yes (Hospitalization)
  Sender: FDA-Public Use
  Company Number: PHHY2011GB80986

PATIENT
  Age: 28 Year
  Sex: Female
  Weight: 56 kg

DRUGS (3)
  1. CEFTAZIDIME [Concomitant]
     Dosage: 2.50 G, TID
     Route: 042
  2. MEROPENEM [Suspect]
     Dosage: 2 G
     Route: 041
     Dates: start: 20110606
  3. TOBRAMYCIN [Concomitant]
     Route: 042

REACTIONS (4)
  - CYANOSIS [None]
  - PRESYNCOPE [None]
  - OXYGEN SATURATION DECREASED [None]
  - CHEST DISCOMFORT [None]
